FAERS Safety Report 12607047 (Version 1)
Quarter: 2016Q3

REPORT INFORMATION
  Report Type: Spontaneous
  Country: HR (occurrence: HR)
  Receive Date: 20160729
  Receipt Date: 20160729
  Transmission Date: 20161109
  Serious: Yes (Other)
  Sender: FDA-Public Use
  Company Number: HR-TEVA-679209ISR

PATIENT
  Age: 74 Year
  Sex: Male

DRUGS (2)
  1. FINASTERIDE. [Suspect]
     Active Substance: FINASTERIDE
     Indication: HYPERSEXUALITY
     Route: 065
  2. CYPROTERONE [Suspect]
     Active Substance: CYPROTERONE
     Indication: HYPERSEXUALITY
     Route: 065

REACTIONS (3)
  - Pruritus [Unknown]
  - Anaemia [Unknown]
  - Rash generalised [Unknown]
